FAERS Safety Report 5987422-2 (Version None)
Quarter: 2008Q4

REPORT INFORMATION
  Report Type: 
  Country: None (occurrence: None)
  Receive Date: 20081209
  Receipt Date: 20080903
  Transmission Date: 20090506
  Serious: No
  Sender: FDA-Public Use
  Company Number: US-AMGEN-KDL298763

PATIENT
  Sex: Female
  Weight: 69 kg

DRUGS (9)
  1. ENBREL [Suspect]
     Indication: RHEUMATOID ARTHRITIS
     Route: 058
     Dates: start: 20080710
  2. METHOTREXATE [Concomitant]
     Route: 048
     Dates: start: 20080401
  3. ATENOLOL [Concomitant]
  4. EVISTA [Concomitant]
  5. PRILOSEC [Concomitant]
  6. METFORMIN HCL [Concomitant]
  7. CELEXA [Concomitant]
  8. VYTORIN [Concomitant]
  9. FOLIC ACID [Concomitant]

REACTIONS (1)
  - JOINT STIFFNESS [None]
